FAERS Safety Report 8446942-1 (Version None)
Quarter: 2012Q2

REPORT INFORMATION
  Report Type: 
  Country: None (occurrence: None)
  Receive Date: 20120613
  Receipt Date: 20120613
  Transmission Date: 20120825
  Serious: Yes (Other)
  Sender: FDA-Public Use
  Company Number: None

PATIENT
  Sex: Female
  Weight: 117.9352 kg

DRUGS (1)
  1. HYDROCHLOROTHIAZIDE [Suspect]
     Indication: BLOOD PRESSURE DECREASED
     Dosage: 25MG DAILY PO
     Route: 048
     Dates: start: 20110728, end: 20120608

REACTIONS (9)
  - MALAISE [None]
  - ABDOMINAL PAIN UPPER [None]
  - DIARRHOEA [None]
  - GASTROINTESTINAL DISORDER [None]
  - DEHYDRATION [None]
  - NAUSEA [None]
  - FREQUENT BOWEL MOVEMENTS [None]
  - ASTHENIA [None]
  - DECREASED APPETITE [None]
